FAERS Safety Report 20700826 (Version 2)
Quarter: 2022Q2

REPORT INFORMATION
  Report Type: Report from Study
  Country: CA (occurrence: CA)
  Receive Date: 20220412
  Receipt Date: 20220527
  Transmission Date: 20220721
  Serious: Yes (Hospitalization, Other)
  Sender: FDA-Public Use
  Company Number: CA-BRISTOL-MYERS SQUIBB COMPANY-2022-016759

PATIENT
  Age: 71 Year
  Sex: Male

DRUGS (2)
  1. REVLIMID [Suspect]
     Active Substance: LENALIDOMIDE
     Indication: Plasma cell myeloma
     Dosage: 10MG DAILY FOR 21/28DAYS
     Route: 048
     Dates: start: 20151015
  2. REVLIMID [Suspect]
     Active Substance: LENALIDOMIDE
     Dosage: 21C/28
     Route: 048
     Dates: start: 20171025, end: 20220401

REACTIONS (2)
  - COVID-19 [Unknown]
  - Sepsis [Unknown]

NARRATIVE: CASE EVENT DATE: 20220401
